FAERS Safety Report 8154956-4 (Version None)
Quarter: 2012Q1

REPORT INFORMATION
  Report Type: 
  Country: None (occurrence: None)
  Receive Date: 20120221
  Receipt Date: 20120216
  Transmission Date: 20120608
  Serious: Yes (Other)
  Sender: FDA-Public Use
  Company Number: PHHY2012BR006154

PATIENT
  Sex: Male

DRUGS (10)
  1. FORMOTEROL FUMARATE [Suspect]
     Indication: EMPHYSEMA
     Dosage: 1 DF, (12 MG FORMOTEROL / 400 MG BUDESONIDE) BID
  2. METFORMIN HCL [Concomitant]
     Dosage: 850 MG, UNK
  3. AMARYL [Concomitant]
  4. ENALAPRIL MALEATE [Concomitant]
     Indication: BLOOD PRESSURE
     Dosage: 1 DF, Q6H
     Dates: start: 20080101
  5. ASPIRIN [Concomitant]
     Dosage: 1 DF, QD
     Dates: start: 20080101
  6. CARVEDILOL [Concomitant]
     Indication: CARDIAC DISORDER
     Dosage: 1 DF, BID
     Dates: start: 20080101
  7. OMEPRAZOLE [Concomitant]
     Dosage: 1 DF, QD
  8. SPIRONOLACTONE [Concomitant]
     Dosage: 1 DF, QD
     Dates: start: 20080101
  9. GALVUS [Suspect]
     Indication: DIABETES MELLITUS
     Dates: start: 20100101
  10. TRAJENTA [Concomitant]
     Indication: DIABETES MELLITUS
     Dosage: 1 DF, QD
     Dates: start: 20120216

REACTIONS (2)
  - ANXIETY [None]
  - DEPRESSION [None]
